FAERS Safety Report 6347973-8 (Version None)
Quarter: 2009Q3

REPORT INFORMATION
  Report Type: 
  Country: None (occurrence: None)
  Receive Date: 20090910
  Receipt Date: 20090830
  Transmission Date: 20100115
  Serious: Yes (Hospitalization)
  Sender: FDA-Public Use
  Company Number: CA-ELI_LILLY_AND_COMPANY-CA200908006665

PATIENT
  Age: 60 Year
  Sex: Male

DRUGS (16)
  1. FORTEO [Suspect]
     Indication: OSTEOPOROSIS
     Dosage: 20 UG, DAILY (1/D)
     Route: 058
     Dates: start: 20071220, end: 20090326
  2. SYMBICORT [Concomitant]
  3. NASONEX [Concomitant]
  4. BRICANYL [Concomitant]
  5. NOVOPUROL [Concomitant]
  6. PANTOLOC /01263201/ [Concomitant]
  7. FLOMAX [Concomitant]
  8. REMERON [Concomitant]
  9. CRESTOR [Concomitant]
  10. IMOVANE [Concomitant]
  11. TYLENOL W/ CODEINE NO. 3 [Concomitant]
  12. CALCIUM [Concomitant]
  13. VITAMIN D [Concomitant]
  14. SELENIUM [Concomitant]
  15. VITAMIN E /001105/ [Concomitant]
  16. MULTI-VITAMIN [Concomitant]

REACTIONS (1)
  - INTESTINAL OBSTRUCTION [None]
